FAERS Safety Report 6526821-7 (Version None)
Quarter: 2010Q1

REPORT INFORMATION
  Report Type: 
  Country: None (occurrence: None)
  Receive Date: 20100104
  Receipt Date: 20100104
  Transmission Date: 20100710
  Serious: Yes (Death)
  Sender: FDA-Public Use
  Company Number: None

PATIENT
  Age: 39 Year
  Sex: Male
  Weight: 47.6277 kg

DRUGS (2)
  1. GABAPENTIN [Suspect]
     Indication: NEURALGIA
     Dosage: FOR 7 DAYS -- 2 CAPS 600MG  3X DAILY PO THEN 3 CAPS = 900MG 3X DAILY PO
     Route: 048
     Dates: start: 20081112, end: 20081210
  2. CEPHALEXIN [Concomitant]

REACTIONS (1)
  - COMPLETED SUICIDE [None]
